FAERS Safety Report 23914476 (Version 1)
Quarter: 2024Q2

REPORT INFORMATION
  Report Type: Spontaneous
  Country: PT (occurrence: PT)
  Receive Date: 20240529
  Receipt Date: 20240529
  Transmission Date: 20240716
  Serious: Yes (Hospitalization, Other)
  Sender: FDA-Public Use
  Company Number: PT-SUN PHARMACEUTICAL INDUSTRIES LTD-2024R1-448394

PATIENT
  Age: 67 Year
  Sex: Female

DRUGS (1)
  1. LITHIUM [Suspect]
     Active Substance: LITHIUM
     Indication: Bipolar disorder
     Dosage: 400 MILLIGRAM, BID
     Route: 065

REACTIONS (5)
  - Dyskinesia [Recovering/Resolving]
  - Encephalopathy [Recovering/Resolving]
  - Myoclonus [Unknown]
  - Sepsis [Recovering/Resolving]
  - Toxicity to various agents [Recovering/Resolving]
